FAERS Safety Report 25589727 (Version 2)
Quarter: 2025Q3

REPORT INFORMATION
  Report Type: Spontaneous
  Country: EU (occurrence: EU)
  Receive Date: 20250722
  Receipt Date: 20250806
  Transmission Date: 20251020
  Serious: Yes (Other)
  Sender: RANBAXY
  Company Number: EU-SUN PHARMACEUTICAL INDUSTRIES LTD-2025RR-517677

PATIENT
  Age: 76 Year
  Sex: Female

DRUGS (4)
  1. ATORVASTATIN [Suspect]
     Active Substance: ATORVASTATIN
     Indication: Blood cholesterol increased
     Route: 065
     Dates: start: 20240409, end: 20240923
  2. LEVOTHYROXINE [Concomitant]
     Active Substance: LEVOTHYROXINE
     Indication: Hypothyroidism
     Route: 065
  3. LEVOTHYROXINE [Concomitant]
     Active Substance: LEVOTHYROXINE
     Dosage: 6 DOSAGE FORM, WEEKLY
     Route: 065
  4. LEVOTHYROXINE [Concomitant]
     Active Substance: LEVOTHYROXINE
     Dosage: 4 DOSAGE FORM
     Route: 065

REACTIONS (12)
  - Balance disorder [Unknown]
  - Fall [Unknown]
  - Spinal fracture [Unknown]
  - Peripheral swelling [Unknown]
  - Joint effusion [Unknown]
  - Pain in extremity [Unknown]
  - Hernia [Unknown]
  - Gastrooesophageal reflux disease [Unknown]
  - Generalised oedema [Unknown]
  - Back pain [Unknown]
  - Abdominal hernia [Unknown]
  - Umbilical hernia [Unknown]

NARRATIVE: CASE EVENT DATE: 20240101
